FAERS Safety Report 6857952-X (Version None)
Quarter: 2010Q3

REPORT INFORMATION
  Report Type: 
  Country: None (occurrence: None)
  Receive Date: 20100714
  Receipt Date: 20100630
  Transmission Date: 20110219
  Serious: Yes (Death)
  Sender: FDA-Public Use
  Company Number: 7009938

PATIENT
  Age: 12 Year
  Sex: Male

DRUGS (4)
  1. SAIZEN [Suspect]
     Indication: GROWTH HORMONE DEFICIENCY
     Dosage: 1.4 MG, 1 IN 1
     Dates: start: 20100129
  2. ANTIBOTICS (ANTIBOTICS) [Concomitant]
  3. COUGH SYRUPS (COUGH SYRUP) [Concomitant]
  4. SPRAY CONTAINING STEROID (CORTICOSTERODIS) [Concomitant]

REACTIONS (6)
  - ASPHYXIA [None]
  - ASPIRATION [None]
  - BRAIN DEATH [None]
  - DYSPHAGIA [None]
  - HYPERSOMNIA [None]
  - HYPOXIA [None]
